FAERS Safety Report 23221985 (Version 1)
Quarter: 2023Q4

REPORT INFORMATION
  Report Type: Spontaneous
  Country: CN (occurrence: CN)
  Receive Date: 20231123
  Receipt Date: 20231123
  Transmission Date: 20240110
  Serious: Yes (Hospitalization, Other)
  Sender: FDA-Public Use
  Company Number: None

PATIENT
  Age: 76 Year
  Sex: Male

DRUGS (10)
  1. IFOSFAMIDE [Suspect]
     Active Substance: IFOSFAMIDE
     Indication: Diffuse large B-cell lymphoma
     Dosage: 3 G, ONE TIME IN ONE DAY, (BR2-ICE CHEMOTHERAPY REGIMEN)
     Route: 041
     Dates: start: 20231027, end: 20231027
  2. IFOSFAMIDE [Suspect]
     Active Substance: IFOSFAMIDE
     Indication: Chemotherapy
  3. ETOPOSIDE [Suspect]
     Active Substance: ETOPOSIDE
     Indication: Diffuse large B-cell lymphoma
     Dosage: 80 MG, ONE TIME IN ONE DAY, (BR2-ICE CHEMOTHERAPY REGIMEN)
     Route: 041
     Dates: start: 20231026, end: 20231028
  4. ETOPOSIDE [Suspect]
     Active Substance: ETOPOSIDE
     Indication: Chemotherapy
  5. RITUXIMAB [Suspect]
     Active Substance: RITUXIMAB
     Indication: Diffuse large B-cell lymphoma
     Dosage: 700 MG, ONE TIME IN ONE DAY, (BR2-ICE CHEMOTHERAPY REGIMEN)
     Route: 041
     Dates: start: 20231025, end: 20231025
  6. RITUXIMAB [Suspect]
     Active Substance: RITUXIMAB
     Indication: Chemotherapy
  7. CARBOPLATIN [Suspect]
     Active Substance: CARBOPLATIN
     Indication: Diffuse large B-cell lymphoma
     Dosage: 400 MG, ONE TIME IN ONE DAY, (BR2-ICE CHEMOTHERAPY REGIMEN)
     Route: 041
     Dates: start: 20231027, end: 20231027
  8. CARBOPLATIN [Suspect]
     Active Substance: CARBOPLATIN
     Indication: Chemotherapy
  9. BENDAMUSTINE HYDROCHLORIDE [Suspect]
     Active Substance: BENDAMUSTINE HYDROCHLORIDE
     Indication: Diffuse large B-cell lymphoma
     Dosage: 100 MG, ONE TIME IN ONE DAY, (BR2-ICE CHEMOTHERAPY REGIMEN)
     Route: 041
     Dates: start: 20231026, end: 20231028
  10. BENDAMUSTINE HYDROCHLORIDE [Suspect]
     Active Substance: BENDAMUSTINE HYDROCHLORIDE
     Indication: Chemotherapy

REACTIONS (4)
  - Diffuse large B-cell lymphoma recurrent [Unknown]
  - Myelosuppression [Recovering/Resolving]
  - White blood cell count decreased [Recovering/Resolving]
  - Diarrhoea [Recovered/Resolved]

NARRATIVE: CASE EVENT DATE: 20231102
